FAERS Safety Report 21351927 (Version 4)
Quarter: 2023Q2

REPORT INFORMATION
  Report Type: Other
  Country: NL (occurrence: None)
  Receive Date: 20220920
  Receipt Date: 20230522
  Transmission Date: 20230721
  Serious: Yes (Other)
  Sender: FDA-Public Use
  Company Number: NL-ROCHE-3178168

PATIENT
  Age: 19 Year
  Sex: Male

DRUGS (1)
  1. RISDIPLAM [Suspect]
     Active Substance: RISDIPLAM
     Indication: Spinal muscular atrophy
     Route: 048

REACTIONS (5)
  - Hypokalaemia [Recovered/Resolved]
  - Acquired Von Willebrand^s disease [Recovered/Resolved]
  - Bladder disorder [Recovered/Resolved]
  - Amylase increased [Recovered/Resolved]
  - Activated partial thromboplastin time prolonged [Recovered/Resolved]

NARRATIVE: CASE EVENT DATE: 20220401
